FAERS Safety Report 11492884 (Version 1)
Quarter: 2015Q3

REPORT INFORMATION
  Report Type: Spontaneous
  Country: US (occurrence: US)
  Receive Date: 20150911
  Receipt Date: 20150911
  Transmission Date: 20151125
  Serious: Yes (Hospitalization)
  Sender: FDA-Public Use
  Company Number: US-ASTRAZENECA-2015SE86258

PATIENT
  Sex: Female

DRUGS (3)
  1. FENTANYL. [Concomitant]
     Active Substance: FENTANYL
     Route: 065
  2. MOVANTIK [Suspect]
     Active Substance: NALOXEGOL OXALATE
     Indication: CONSTIPATION
     Route: 048
  3. CARDIZEM [Interacting]
     Active Substance: DILTIAZEM HYDROCHLORIDE
     Route: 065

REACTIONS (5)
  - Vomiting [Unknown]
  - Drug interaction [Unknown]
  - Abdominal pain [Unknown]
  - Nausea [Unknown]
  - Condition aggravated [Unknown]
